FAERS Safety Report 10172132 (Version 1)
Quarter: 2014Q2

REPORT INFORMATION
  Report Type: Report from Study
  Country: US (occurrence: US)
  Receive Date: 20140515
  Receipt Date: 20140515
  Transmission Date: 20141212
  Serious: Yes (Other)
  Sender: FDA-Public Use
  Company Number: PHEH2014US009558

PATIENT
  Age: 50 Year
  Sex: Female

DRUGS (10)
  1. ILARIS [Suspect]
     Indication: SYSTEMIC LUPUS ERYTHEMATOSUS
     Dosage: 180 MG, EVERY 8 WEEKS
     Route: 058
     Dates: start: 201403
  2. ILARIS [Suspect]
     Indication: OFF LABEL USE
  3. LISINOPRIL [Concomitant]
     Dosage: UNK
  4. LASIX [Concomitant]
     Dosage: UNK
  5. AMLODIPINE BENAZEPRIL [Concomitant]
     Dosage: UNK
  6. LABETALOL [Concomitant]
     Dosage: UNK
  7. HYDROCHLOROTHIAZIDE [Concomitant]
     Dosage: UNK
  8. PLAQUENIL [Concomitant]
     Dosage: UNK
  9. IMURAN [Concomitant]
     Dosage: UNK
  10. PREDNISONE [Concomitant]
     Dosage: UNK

REACTIONS (1)
  - Pyrexia [Recovering/Resolving]
